FAERS Safety Report 5953892-9 (Version None)
Quarter: 2008Q4

REPORT INFORMATION
  Report Type: 
  Country: None (occurrence: None)
  Receive Date: 20081114
  Receipt Date: 20081111
  Transmission Date: 20090506
  Serious: Yes (Death)
  Sender: FDA-Public Use
  Company Number: US-B.I. PHARMACEUTICALS,INC./RIDGEFIELD-2008-BP-17055BP

PATIENT
  Age: 49 Year
  Sex: Female

DRUGS (2)
  1. MOBIC [Suspect]
     Indication: BACK PAIN
     Dosage: 7.5MG
     Route: 048
  2. KADIAN [Suspect]
     Indication: BACK PAIN
     Dosage: 60MG
     Route: 048
     Dates: start: 20081013

REACTIONS (1)
  - DEATH [None]
